FAERS Safety Report 8558057-2 (Version None)
Quarter: 2012Q3

REPORT INFORMATION
  Report Type: 
  Country: None (occurrence: None)
  Receive Date: 20120801
  Receipt Date: 20120724
  Transmission Date: 20120928
  Serious: Yes (Other)
  Sender: FDA-Public Use
  Company Number: US-ELI_LILLY_AND_COMPANY-US201207007621

PATIENT
  Age: 76 Year
  Sex: Female

DRUGS (2)
  1. EVISTA [Suspect]
     Indication: OSTEOPOROSIS
     Dosage: 60 MG, QD
  2. LOVASTATIN [Concomitant]
     Indication: BLOOD CHOLESTEROL

REACTIONS (2)
  - BREAST CANCER [None]
  - IRRITABILITY [None]
